FAERS Safety Report 14708003 (Version 1)
Quarter: 2018Q2

REPORT INFORMATION
  Report Type: Spontaneous
  Country: US (occurrence: US)
  Receive Date: 20180403
  Receipt Date: 20180403
  Transmission Date: 20180711
  Serious: No
  Sender: FDA-Public Use
  Company Number: US-PFIZER INC-2018134182

PATIENT
  Age: 78 Year
  Sex: Female

DRUGS (1)
  1. IBRANCE [Suspect]
     Active Substance: PALBOCICLIB
     Dosage: UNK
     Dates: start: 201711

REACTIONS (7)
  - Emotional disorder [Recovering/Resolving]
  - Abdominal pain upper [Recovering/Resolving]
  - Insomnia [Unknown]
  - Alopecia [Unknown]
  - Malaise [Unknown]
  - Constipation [Unknown]
  - Nausea [Recovering/Resolving]

NARRATIVE: CASE EVENT DATE: 201711
